FAERS Safety Report 9219878 (Version 1)
Quarter: 2013Q1

REPORT INFORMATION
  Report Type: Spontaneous
  Country: US (occurrence: None)
  Receive Date: 20120828
  Receipt Date: 20120828
  Transmission Date: 20140127
  Serious: Yes (Other)
  Sender: FDA-Public Use
  Company Number: 2011BH032311

PATIENT
  Age: 29 Year
  Sex: Female

DRUGS (1)
  1. KIOVIG LIQUID 10% SOLUTIONG FOR INFUSION VIAL GLASS 9IMMUNOGLOBIN, NORMAL HUMAN)(SOLUTION FOR INFUSION) [Suspect]
     Indication: PRODUCT USED FOR UNKNOWN INDICATION
     Route: 042

REACTIONS (1)
  - Pyrexia [None]
